FAERS Safety Report 5781553-8 (Version None)
Quarter: 2008Q2

REPORT INFORMATION
  Report Type: 
  Country: None (occurrence: None)
  Receive Date: 20080623
  Receipt Date: 20070430
  Transmission Date: 20081010
  Serious: No
  Sender: FDA-Public Use
  Company Number: US-ASTRAZENECA-2007UW08582

PATIENT
  Age: 69 Year
  Sex: Female
  Weight: 59 kg

DRUGS (7)
  1. RHINOCORT [Suspect]
     Indication: ALLERGY PROPHYLAXIS
     Dosage: 32 UG 120 METER/SPRAY
     Route: 045
  2. ZYRTEC [Suspect]
  3. LISINOPRIL [Concomitant]
  4. ALBUTEROL [Concomitant]
  5. THEOPHYLLINE [Concomitant]
  6. LEVOXYL [Concomitant]
  7. SPIRIVA [Concomitant]

REACTIONS (1)
  - URTICARIA [None]
